FAERS Safety Report 6813805-4 (Version None)
Quarter: 2010Q3

REPORT INFORMATION
  Report Type: 
  Country: None (occurrence: None)
  Receive Date: 20100702
  Receipt Date: 20100330
  Transmission Date: 20110219
  Serious: Yes (Hospitalization)
  Sender: FDA-Public Use
  Company Number: US-ASTRAZENECA-2006UW04988

PATIENT
  Age: 47 Year
  Sex: Female
  Weight: 69.4 kg

DRUGS (30)
  1. SEROQUEL [Suspect]
     Indication: SCHIZOAFFECTIVE DISORDER
     Dosage: 100 MG TO 200 MG
     Route: 048
     Dates: start: 19980606
  2. SEROQUEL [Suspect]
     Indication: BIPOLAR DISORDER
     Dosage: 100 MG TO 200 MG
     Route: 048
     Dates: start: 19980606
  3. SEROQUEL [Suspect]
     Dosage: 25 MG TO 100 MG
     Route: 048
     Dates: start: 20011201, end: 20030301
  4. SEROQUEL [Suspect]
     Dosage: 25 MG TO 100 MG
     Route: 048
     Dates: start: 20011201, end: 20030301
  5. SEROQUEL [Suspect]
     Dosage: 25MG-150MG
     Route: 048
     Dates: start: 20011212
  6. SEROQUEL [Suspect]
     Dosage: 25MG-150MG
     Route: 048
     Dates: start: 20011212
  7. ZYPREXA [Suspect]
     Route: 065
  8. ABILIFY [Concomitant]
     Dates: start: 20020101, end: 20030101
  9. COMBIVENT [Concomitant]
  10. PREVACID [Concomitant]
  11. ALPRAZOLAM [Concomitant]
  12. SINGULAIR [Concomitant]
  13. ZYRTEC [Concomitant]
  14. TRAMADOL HCL [Concomitant]
  15. CELEXA [Concomitant]
     Indication: SCHIZOPHRENIA
     Dosage: 20MG-40MG
  16. ESTRATEST [Concomitant]
  17. OYSCO-500 [Concomitant]
  18. ATENOLOL [Concomitant]
  19. CLOTRIMAZOLE [Concomitant]
  20. BIAXIN XL [Concomitant]
  21. LITHONATE [Concomitant]
     Dates: start: 19980611
  22. BENZTROPINE MESYLATE [Concomitant]
     Dates: start: 19990601
  23. TRIMETHOPRIM [Concomitant]
     Dates: start: 19990712
  24. CEPHALEXIN [Concomitant]
     Dates: start: 19990714
  25. METRONIDAZOLE [Concomitant]
     Dates: start: 19990827
  26. LAMISIL [Concomitant]
     Dates: start: 19990714
  27. RISPERDAL [Concomitant]
     Dosage: 2 MG TO 3 MG
     Dates: start: 20000610
  28. EFFEXOR XR [Concomitant]
     Dosage: 37.5 MG TO 150 MG
     Dates: start: 20000220
  29. VIOXX [Concomitant]
     Dates: start: 20000801
  30. WELLBUTRIN SR [Concomitant]
     Dates: start: 20000616

REACTIONS (8)
  - BLOOD CHOLESTEROL INCREASED [None]
  - BLOOD TRIGLYCERIDES INCREASED [None]
  - COLONIC POLYP [None]
  - DIABETES MELLITUS [None]
  - FLANK PAIN [None]
  - HYDRONEPHROSIS [None]
  - INTESTINAL POLYP [None]
  - RENAL DISORDER [None]
